FAERS Safety Report 17453402 (Version 12)
Quarter: 2022Q3

REPORT INFORMATION
  Report Type: Report from Study
  Country: US (occurrence: US)
  Receive Date: 20200224
  Receipt Date: 20220908
  Transmission Date: 20221027
  Serious: Yes (Other)
  Sender: FDA-Public Use
  Company Number: US-AMGEN-USASL2020003594

PATIENT
  Age: 80 Year
  Sex: Female
  Weight: 48.5 kg

DRUGS (17)
  1. NPLATE [Suspect]
     Active Substance: ROMIPLOSTIM
     Indication: Immune thrombocytopenia
     Dosage: 125 MICROGRAM (2.5MCG/KG), QWK
     Route: 065
     Dates: start: 2010
  2. NPLATE [Suspect]
     Active Substance: ROMIPLOSTIM
     Dosage: 120 MICROGRAM
     Route: 065
     Dates: start: 2019
  3. NPLATE [Suspect]
     Active Substance: ROMIPLOSTIM
     Dosage: 175 MICROGRAM (3.6MCG/KG), QWK
     Route: 065
     Dates: start: 20200108
  4. NPLATE [Suspect]
     Active Substance: ROMIPLOSTIM
     Dosage: 145 MICROGRAM, QWK
     Route: 065
  5. NPLATE [Suspect]
     Active Substance: ROMIPLOSTIM
     Dosage: 125 MICROGRAM, QWK
     Route: 065
  6. NPLATE [Suspect]
     Active Substance: ROMIPLOSTIM
     Dosage: UNK, DOSE LOWERED
     Route: 065
     Dates: start: 2021
  7. NPLATE [Suspect]
     Active Substance: ROMIPLOSTIM
     Dosage: 150 MICROGRAM, QWK
     Route: 065
     Dates: start: 2021
  8. NPLATE [Suspect]
     Active Substance: ROMIPLOSTIM
     Dosage: 200 MICROGRAM
     Route: 065
     Dates: start: 202103
  9. NPLATE [Suspect]
     Active Substance: ROMIPLOSTIM
     Dosage: 150 MICROGRAM, QWK
     Route: 065
  10. NPLATE [Suspect]
     Active Substance: ROMIPLOSTIM
     Dosage: 200 MICROGRAM
     Route: 065
     Dates: start: 20220816
  11. NPLATE [Suspect]
     Active Substance: ROMIPLOSTIM
     Dosage: UNK, DOSE LOWERED
     Route: 065
     Dates: start: 20220823
  12. AMLODIPINE [Concomitant]
     Active Substance: AMLODIPINE BESYLATE
     Indication: Insomnia
     Dosage: 5 MILLIGRAM, QD
  13. AMLODIPINE [Concomitant]
     Active Substance: AMLODIPINE BESYLATE
     Indication: Blood pressure measurement
     Dosage: 5 MILLIGRAM, BID
  14. COVID-19 VACCINE NOS [Concomitant]
     Active Substance: COVID-19 VACCINE NOS
  15. ZOLPIDEM [Concomitant]
     Active Substance: ZOLPIDEM TARTRATE
     Indication: Insomnia
     Dosage: 10 MILLIGRAM, QD
  16. RITUXAN [Concomitant]
     Active Substance: RITUXIMAB
  17. PREDNISONE [Concomitant]
     Active Substance: PREDNISONE

REACTIONS (33)
  - Haemorrhage [Unknown]
  - Loss of consciousness [Unknown]
  - Neck pain [Unknown]
  - Chills [Unknown]
  - Blood pressure increased [Not Recovered/Not Resolved]
  - Diarrhoea [Not Recovered/Not Resolved]
  - Therapeutic product effect decreased [Unknown]
  - Pain [Not Recovered/Not Resolved]
  - Dizziness [Recovering/Resolving]
  - Headache [Not Recovered/Not Resolved]
  - Arthralgia [Not Recovered/Not Resolved]
  - Dyspepsia [Unknown]
  - Abdominal distension [Not Recovered/Not Resolved]
  - Myalgia [Not Recovered/Not Resolved]
  - Injection site bruising [Not Recovered/Not Resolved]
  - Ocular hyperaemia [Not Recovered/Not Resolved]
  - Condition aggravated [Unknown]
  - Feeling abnormal [Unknown]
  - Injection site haemorrhage [Recovered/Resolved]
  - Dyspnoea [Not Recovered/Not Resolved]
  - Back pain [Unknown]
  - Pain in extremity [Unknown]
  - Candida infection [Unknown]
  - Mean cell volume abnormal [Unknown]
  - Platelet count decreased [Recovering/Resolving]
  - Rash pruritic [Unknown]
  - Rash papular [Unknown]
  - Contusion [Unknown]
  - Petechiae [Unknown]
  - Impaired healing [Unknown]
  - Oral pain [Unknown]
  - Skin laceration [Unknown]
  - Extrasystoles [Unknown]

NARRATIVE: CASE EVENT DATE: 20190101
